FAERS Safety Report 5378137-2 (Version None)
Quarter: 2007Q3

REPORT INFORMATION
  Report Type: 
  Country: None (occurrence: None)
  Receive Date: 20070705
  Receipt Date: 20070625
  Transmission Date: 20080115
  Serious: Yes (Hospitalization)
  Sender: FDA-Public Use
  Company Number: PHNU2007DE02247

PATIENT
  Sex: Male

DRUGS (9)
  1. CLOZAPINE [Suspect]
     Indication: ABNORMAL BEHAVIOUR
     Dosage: 475 MG/DAY
     Route: 048
     Dates: start: 20050701, end: 20061022
  2. CLOZAPINE [Suspect]
     Dosage: 425 MG/DAY
     Route: 048
     Dates: start: 20061023, end: 20061024
  3. CLOZAPINE [Suspect]
     Dosage: 375 MG/DAY
     Route: 048
     Dates: start: 20061025, end: 20061031
  4. CLOZAPINE [Suspect]
     Dosage: 325 MG/DAY
     Route: 048
     Dates: start: 20061101, end: 20061101
  5. CLOZAPINE [Suspect]
     Dosage: 300 MG/DAY
     Route: 048
     Dates: start: 20061102
  6. GASTROZEPIN [Suspect]
     Indication: SALIVARY HYPERSECRETION
     Dosage: 50 MG/DAY
     Route: 048
     Dates: start: 20050701, end: 20061017
  7. DIPIPERON [Concomitant]
     Dosage: 50 MG/DAY
     Route: 048
     Dates: start: 20061027, end: 20061027
  8. DIPIPERON [Concomitant]
     Dosage: 60 MG/DAY
     Route: 048
     Dates: start: 20061028, end: 20061102
  9. DIPIPERON [Concomitant]
     Dosage: 80 MG/DAY
     Route: 048
     Dates: start: 20061103

REACTIONS (4)
  - POLYDIPSIA [None]
  - POLYURIA [None]
  - RESTLESSNESS [None]
  - SALIVARY HYPERSECRETION [None]
